FAERS Safety Report 19118825 (Version 6)
Quarter: 2022Q1

REPORT INFORMATION
  Report Type: Report from Study
  Country: US (occurrence: US)
  Receive Date: 20210409
  Receipt Date: 20220123
  Transmission Date: 20220423
  Serious: Yes (Other)
  Sender: FDA-Public Use
  Company Number: US-ABBVIE-21K-163-3848342-00

PATIENT
  Age: 86 Year
  Sex: Male

DRUGS (40)
  1. VENCLEXTA [Suspect]
     Active Substance: VENETOCLAX
     Indication: Non-Hodgkin^s lymphoma
     Dosage: TAKE 1 TABLET BY MOUTH EVERY DAY
     Route: 048
     Dates: start: 20170619
  2. VENCLEXTA [Suspect]
     Active Substance: VENETOCLAX
     Indication: Waldenstrom^s macroglobulinaemia
     Route: 048
     Dates: start: 20200818, end: 20210105
  3. VENCLEXTA [Suspect]
     Active Substance: VENETOCLAX
     Route: 048
     Dates: start: 20210205, end: 20210401
  4. VENCLEXTA [Suspect]
     Active Substance: VENETOCLAX
     Route: 048
  5. VENCLEXTA [Suspect]
     Active Substance: VENETOCLAX
     Route: 048
     Dates: start: 20210402
  6. RITUXIMAB [Suspect]
     Active Substance: RITUXIMAB
     Indication: Waldenstrom^s macroglobulinaemia
     Dosage: 375 D1; DISCONTINUED
     Route: 065
     Dates: start: 20191018, end: 20191217
  7. BENDEKA [Concomitant]
     Active Substance: BENDAMUSTINE HYDROCHLORIDE
     Indication: Non-Hodgkin^s lymphoma
     Dosage: 120 D1, 2; DISCONTINUED
     Dates: start: 20191028, end: 20191104
  8. BENDEKA [Concomitant]
     Active Substance: BENDAMUSTINE HYDROCHLORIDE
     Indication: Waldenstrom^s macroglobulinaemia
  9. ELITEK [Concomitant]
     Active Substance: RASBURICASE
     Indication: Waldenstrom^s macroglobulinaemia
     Dosage: 0.2 D1-3; DISCONTINUED
     Dates: start: 20191018, end: 20191217
  10. NEULASTA [Concomitant]
     Active Substance: PEGFILGRASTIM
     Indication: Waldenstrom^s macroglobulinaemia
     Dosage: 6MG/0.6 ML SYRINGE D3 EVERY 21 X 8, 24 HR AFTER COMPLETION OF CHEMO TREATMENT CYCLE
     Route: 058
     Dates: start: 20191018, end: 20191207
  11. CYTOXAN [Concomitant]
     Active Substance: CYCLOPHOSPHAMIDE
     Indication: Waldenstrom^s macroglobulinaemia
     Dosage: 500 D1, 8 Q21 X 6; DISCONTINUED
     Dates: start: 20200203, end: 20200203
  12. PREVNAR 13 [Concomitant]
     Active Substance: PNEUMOCOCCAL 13-VALENT CONJUGATE VACCINE
     Indication: Waldenstrom^s macroglobulinaemia
     Dates: start: 20200812, end: 20200812
  13. BORTEZOMIB [Concomitant]
     Active Substance: BORTEZOMIB
     Indication: Waldenstrom^s macroglobulinaemia
     Dosage: IVP: D 1, 8, 15, 22--4 WEEK ON 2 WEEK OFF X 12;
     Route: 058
     Dates: start: 20191004, end: 20191011
  14. DECADRON [Concomitant]
     Active Substance: DEXAMETHASONE
     Indication: Waldenstrom^s macroglobulinaemia
     Dosage: 20 D1,8 15 Q 28X 6; DISCONTINUED
     Route: 042
     Dates: start: 20191004, end: 20191011
  15. IMBRUVICA [Concomitant]
     Active Substance: IBRUTINIB
     Indication: Chronic lymphocytic leukaemia
     Route: 048
     Dates: start: 20190709, end: 20190903
  16. IMBRUVICA [Concomitant]
     Active Substance: IBRUTINIB
     Indication: Waldenstrom^s macroglobulinaemia
     Route: 048
     Dates: start: 20180312, end: 20181008
  17. IMBRUVICA [Concomitant]
     Active Substance: IBRUTINIB
     Route: 048
     Dates: start: 20170619, end: 20171106
  18. IMBRUVICA [Concomitant]
     Active Substance: IBRUTINIB
     Route: 048
     Dates: start: 20181019, end: 20190308
  19. IMBRUVICA [Concomitant]
     Active Substance: IBRUTINIB
     Dosage: 1 CAP PO Q DAY
     Route: 048
  20. IMBRUVICA [Concomitant]
     Active Substance: IBRUTINIB
     Dosage: 1 CAP BID
     Route: 048
  21. IMBRUVICA [Concomitant]
     Active Substance: IBRUTINIB
     Dosage: 1 CAP TID
     Route: 048
  22. IMBRUVICA [Concomitant]
     Active Substance: IBRUTINIB
     Dosage: 3 CAP PO Q DAY
     Route: 048
  23. FLUZONE [Concomitant]
     Active Substance: INFLUENZA A VIRUS A/CALIFORNIA/7/2009 X-179A (H1N1) ANTIGEN (FORMALDEHYDE INACTIVATED)\INFLUENZA A V
     Indication: Waldenstrom^s macroglobulinaemia
     Dates: start: 20181008, end: 20181008
  24. PREDNISOLONE ACETATE [Concomitant]
     Active Substance: PREDNISOLONE ACETATE
     Indication: Product used for unknown indication
     Dosage: INSTILL 1-2 DROP INTO AFFECTED EYE, 2-4 TIMES DAILY DURING THE INITIAL 24- 48 HR
  25. RISPERIDONE [Concomitant]
     Active Substance: RISPERIDONE
     Indication: Product used for unknown indication
     Dosage: 1 TAB PO BID
     Route: 048
  26. SHINGRIX [Concomitant]
     Active Substance: RECOMBINANT VARICELLA ZOSTER VIRUS (VZV) GLYCOPROTEIN E
     Indication: Product used for unknown indication
     Dosage: 50 MCG/0.5 ML SUSPECSION KIT  ?2 DOSE SERIES AT 0 AND 2 TO 6 MONTH
     Route: 028
  27. TOPROL XL [Concomitant]
     Active Substance: METOPROLOL SUCCINATE
     Indication: Product used for unknown indication
     Dosage: TAB EXTENDED RELEAS
     Route: 048
  28. XARELTO [Concomitant]
     Active Substance: RIVAROXABAN
     Indication: Product used for unknown indication
     Route: 048
  29. ZOFRAN [Concomitant]
     Active Substance: ONDANSETRON HYDROCHLORIDE
     Indication: Product used for unknown indication
     Dosage: 1-2 PO EVERY 8 HR(TID) PRN
     Route: 048
  30. DIGOXIN [Concomitant]
     Active Substance: DIGOXIN
     Indication: Product used for unknown indication
     Dosage: 1 PO QDAY
     Route: 048
  31. DILTIAZEM [Concomitant]
     Active Substance: DILTIAZEM
     Indication: Product used for unknown indication
     Dosage: 1 PO QDAY
     Route: 048
  32. DILTIAZEM [Concomitant]
     Active Substance: DILTIAZEM
     Dosage: 1 PO QDAY
     Route: 048
  33. HALOPERIDOL [Concomitant]
     Active Substance: HALOPERIDOL
     Indication: Product used for unknown indication
     Dosage: 1 PO Q DAY PRN
     Route: 048
  34. GRANISETRON HYDROCHLORIDE [Concomitant]
     Active Substance: GRANISETRON HYDROCHLORIDE
     Indication: Product used for unknown indication
     Dosage: 1 PO BID OR PRN
     Route: 048
  35. PNEUMOCOCCAL VACCINE POLYVALENT NOS [Concomitant]
     Active Substance: PNEUMOCOCCAL VACCINE POLYVALENT
     Indication: Waldenstrom^s macroglobulinaemia
     Dates: start: 20201028, end: 20201104
  36. LASIX [Concomitant]
     Active Substance: FUROSEMIDE
     Indication: Product used for unknown indication
     Dosage: 3 PO Q DAY
     Route: 048
  37. LASIX [Concomitant]
     Active Substance: FUROSEMIDE
     Dosage: 1 PO Q DAY
     Route: 048
  38. LASIX [Concomitant]
     Active Substance: FUROSEMIDE
     Dosage: 2 PO TWICE A DAY
     Route: 048
  39. ALLOPURINOL [Concomitant]
     Active Substance: ALLOPURINOL
     Indication: Product used for unknown indication
     Dosage: 1 PO QDAY X 5 DAY
     Route: 048
  40. UNSPECIFIED INGREDIENT [Concomitant]
     Active Substance: UNSPECIFIED INGREDIENT
     Indication: Waldenstrom^s macroglobulinaemia
     Dosage: 1000 CC.9AS
     Dates: start: 20191004, end: 20191004

REACTIONS (5)
  - Atrial fibrillation [Not Recovered/Not Resolved]
  - Off label use [Unknown]
  - Dementia [Unknown]
  - Dysphagia [Unknown]
  - Asthenia [Unknown]

NARRATIVE: CASE EVENT DATE: 20170901
